FAERS Safety Report 20867145 (Version 2)
Quarter: 2022Q2

REPORT INFORMATION
  Report Type: Spontaneous
  Country: US (occurrence: US)
  Receive Date: 20220524
  Receipt Date: 20220525
  Transmission Date: 20220720
  Serious: Yes (Other)
  Sender: FDA-Public Use
  Company Number: US-ELI_LILLY_AND_COMPANY-US202205005377

PATIENT
  Sex: Female

DRUGS (5)
  1. HUMULIN N [Suspect]
     Active Substance: INSULIN HUMAN
     Indication: Product used for unknown indication
     Dosage: 58 U, EACH EVENING
     Route: 065
  2. HUMULIN N [Suspect]
     Active Substance: INSULIN HUMAN
     Dosage: 54 U, DURING THE DAY
     Route: 065
  3. HUMULIN N [Suspect]
     Active Substance: INSULIN HUMAN
     Dosage: UNK UNK, UNKNOWN
     Route: 065
  4. HUMULIN R [Suspect]
     Active Substance: INSULIN HUMAN
     Indication: Product used for unknown indication
     Dosage: UNK, SLIDING SCALE BEFORE MEALS MDD 52
     Route: 065
  5. HUMULIN R [Suspect]
     Active Substance: INSULIN HUMAN
     Dosage: UNK, UNKNOWN
     Route: 065

REACTIONS (10)
  - Restrictive pulmonary disease [Unknown]
  - Macular degeneration [Unknown]
  - Glaucoma [Unknown]
  - Neuropathy peripheral [Unknown]
  - Visual impairment [Unknown]
  - Hypothyroidism [Unknown]
  - Retinopathy [Unknown]
  - Lymphoedema [Unknown]
  - Blood glucose increased [Unknown]
  - Blood glucose decreased [Unknown]
